FAERS Safety Report 5597499-4 (Version None)
Quarter: 2008Q1

REPORT INFORMATION
  Report Type: 
  Country: None (occurrence: None)
  Receive Date: 20080121
  Receipt Date: 20080111
  Transmission Date: 20080703
  Serious: Yes (Other)
  Sender: FDA-Public Use
  Company Number: PHFR2007GB03695

PATIENT
  Age: 25 Year
  Sex: Female

DRUGS (3)
  1. CLOZARIL [Suspect]
     Indication: SCHIZOPHRENIA
     Dosage: 500MG DAILY
     Route: 048
     Dates: start: 20071122
  2. HALOPERIDOL [Concomitant]
     Route: 065
  3. ANTIDEPRESSANTS [Concomitant]
     Route: 065

REACTIONS (1)
  - ELECTROCARDIOGRAM QT PROLONGED [None]
